FAERS Safety Report 4764004-1 (Version None)
Quarter: 2005Q3

REPORT INFORMATION
  Report Type: 
  Country: None (occurrence: None)
  Receive Date: 20050906
  Receipt Date: 20050822
  Transmission Date: 20060218
  Serious: Yes (Hospitalization)
  Sender: FDA-Public Use
  Company Number: 2005063741

PATIENT
  Sex: Female
  Weight: 46.2669 kg

DRUGS (5)
  1. DETROL LA [Suspect]
     Indication: NOCTURIA
     Dosage: 4 MG (4 MG, 1 IN 1 D), ORAL
     Route: 048
  2. FOSAMAX [Concomitant]
  3. TYLENOL [Concomitant]
  4. VITAMINS (VITAMINS) [Concomitant]
  5. CALCIUM WITH VITAMIN D (CALCIUM PHOSPHATE, CALCIUM SODIUM LACTATE, ERG [Concomitant]

REACTIONS (3)
  - DRY MOUTH [None]
  - FALL [None]
  - WRIST FRACTURE [None]
